FAERS Safety Report 19242119 (Version 1)
Quarter: 2021Q2

REPORT INFORMATION
  Report Type: Spontaneous
  Country: US (occurrence: US)
  Receive Date: 20210510
  Receipt Date: 20210510
  Transmission Date: 20210717
  Serious: No
  Sender: FDA-Public Use
  Company Number: US-NOVOPROD-793515

PATIENT
  Sex: Female

DRUGS (5)
  1. NORDITROPIN [Suspect]
     Active Substance: SOMATROPIN
     Dosage: 0.25 (UNITS NOT REPORTED)
     Route: 065
  2. NORDITROPIN [Suspect]
     Active Substance: SOMATROPIN
     Dosage: 0.15 (UNITS NOT REPORTED)
     Route: 065
     Dates: start: 20201010
  3. NORDITROPIN [Suspect]
     Active Substance: SOMATROPIN
     Dosage: 0.3 MG, QD
     Route: 065
     Dates: start: 20201010
  4. NORDITROPIN [Suspect]
     Active Substance: SOMATROPIN
     Dosage: 0.2 (UNITS NOT REPORTED)
     Route: 065
  5. NORDITROPIN [Suspect]
     Active Substance: SOMATROPIN
     Indication: PRODUCT USED FOR UNKNOWN INDICATION
     Dosage: VERY LOW DOSE
     Route: 065
     Dates: start: 202010

REACTIONS (7)
  - Inflammation [Unknown]
  - Arthralgia [Unknown]
  - Skin lesion [Unknown]
  - Feeling abnormal [Not Recovered/Not Resolved]
  - Hypersensitivity [Unknown]
  - Food allergy [Unknown]
  - Dry skin [Unknown]

NARRATIVE: CASE EVENT DATE: 202012
